FAERS Safety Report 4790418-X (Version None)
Quarter: 2005Q4

REPORT INFORMATION
  Report Type: 
  Country: None (occurrence: None)
  Receive Date: 20051006
  Receipt Date: 20050926
  Transmission Date: 20060501
  Serious: Yes (Hospitalization)
  Sender: FDA-Public Use
  Company Number: US-ABBOTT-05P-163-0311910-00

PATIENT
  Sex: Female
  Weight: 74.91 kg

DRUGS (8)
  1. HUMIRA [Suspect]
     Indication: RHEUMATOID ARTHRITIS
     Route: 058
     Dates: start: 20041001, end: 20041012
  2. HUMIRA [Suspect]
     Route: 058
     Dates: start: 20050101, end: 20050301
  3. HUMIRA [Suspect]
     Route: 058
     Dates: start: 20050401, end: 20050909
  4. PREDNISONE [Concomitant]
     Indication: RHEUMATOID ARTHRITIS
     Route: 048
  5. GLIBENCLAMIDE [Concomitant]
     Indication: DIABETES MELLITUS
     Route: 048
  6. LISINOPRIL [Concomitant]
     Indication: HYPERTENSION
     Route: 048
  7. PANTOPRAZOLE [Concomitant]
     Indication: GASTROOESOPHAGEAL REFLUX DISEASE
     Route: 048
  8. PROPACET 100 [Concomitant]
     Indication: PAIN
     Route: 048

REACTIONS (2)
  - DIVERTICULITIS [None]
  - RHEUMATOID ARTHRITIS [None]
